FAERS Safety Report 25651753 (Version 1)
Quarter: 2025Q3

REPORT INFORMATION
  Report Type: Spontaneous
  Country: US (occurrence: US)
  Receive Date: 20250806
  Receipt Date: 20250806
  Transmission Date: 20251020
  Serious: No
  Sender: EVOKE PHARMA
  Company Number: US-EVOKE PHARMA, INC.-2025EVO000021

PATIENT
  Sex: Female

DRUGS (1)
  1. GIMOTI [Suspect]
     Active Substance: METOCLOPRAMIDE HYDROCHLORIDE
     Indication: Product used for unknown indication
     Route: 045

REACTIONS (1)
  - Nasal discomfort [Unknown]
